FAERS Safety Report 4983574-1 (Version None)
Quarter: 2006Q2

REPORT INFORMATION
  Report Type: 
  Country: None (occurrence: None)
  Receive Date: 20060419
  Receipt Date: 20060406
  Transmission Date: 20061013
  Serious: Yes (Other)
  Sender: FDA-Public Use
  Company Number: CERZ-11198

PATIENT
  Age: 61 Year
  Sex: Male

DRUGS (2)
  1. CEREZYME [Suspect]
     Indication: GAUCHER'S DISEASE
     Dosage: 60 U/KG QOW IV
     Route: 042
  2. CEREZYME [Suspect]
     Indication: GAUCHER'S DISEASE
     Dosage: 30 U/KG QOW IV
     Route: 042

REACTIONS (5)
  - ANAEMIA [None]
  - HEPATOMEGALY [None]
  - SPLENOMEGALY [None]
  - THROMBOCYTOPENIA [None]
  - WEIGHT DECREASED [None]
